FAERS Safety Report 8049682 (Version 3)
Quarter: 2020Q3

REPORT INFORMATION
  Report Type: Report from Study
  Country: US (occurrence: US)
  Receive Date: 20110722
  Receipt Date: 20110808
  Transmission Date: 20201104
  Serious: Yes (Death)
  Sender: FDA-Public Use
  Company Number: US-ROCHE-789275

PATIENT
  Age: 58 Year
  Sex: Male
  Weight: 99.3 kg

DRUGS (9)
  1. RIBAVIRIN. [Suspect]
     Active Substance: RIBAVIRIN
     Dosage: DOSAGE FORM: PILL.
     Route: 048
     Dates: start: 20110321
  2. RITONAVIR. [Suspect]
     Active Substance: RITONAVIR
     Dosage: DOSAGE FORM: PILL, LAST DOSE PRIOR TO SAE: 08 JUL 2011
     Route: 048
     Dates: start: 20110321
  3. GLYBURIDE. [Concomitant]
     Active Substance: GLYBURIDE
     Dates: start: 20000127
  4. HYDROCHLOROTHIAZIDE. [Concomitant]
     Active Substance: HYDROCHLOROTHIAZIDE
     Dates: start: 200001
  5. LEVITRA [Concomitant]
     Active Substance: VARDENAFIL HYDROCHLORIDE
  6. PRAVASTATIN. [Concomitant]
     Active Substance: PRAVASTATIN
     Dates: end: 20110613
  7. DANOPREVIR. [Suspect]
     Active Substance: DANOPREVIR
     Dosage: DOSAGE FORM: PILL, LAST DOSE PRIOR TO SAE 08 JUL 2011
     Route: 048
     Dates: start: 20110321
  8. LISINOPRIL. [Concomitant]
     Active Substance: LISINOPRIL
     Dates: start: 200001
  9. PEGINTERFERON ALFA?2A. [Suspect]
     Active Substance: PEGINTERFERON ALFA-2A
     Dosage: DOSAGE FORM: INJECTION
     Route: 058
     Dates: start: 20110321

REACTIONS (1)
  - Coronary artery disease [Fatal]

NARRATIVE: CASE EVENT DATE: 20110708
